FAERS Safety Report 8736133 (Version 2)
Quarter: 2012Q4

REPORT INFORMATION
  Report Type: 
  Country: US (occurrence: US)
  Receive Date: 20120822
  Receipt Date: 20121127
  Transmission Date: 20130627
  Serious: Yes (Other)
  Sender: FDA-Public Use
  Company Number: US-CELGENEUS-163-21880-12081943

PATIENT
  Age: 64 Year
  Sex: Male

DRUGS (6)
  1. REVLIMID [Suspect]
     Indication: MULTIPLE MYELOMA
     Dosage: 25 Milligram
     Route: 048
     Dates: start: 20120720
  2. ACYCLOVIR [Concomitant]
     Indication: PROPHYLAXIS
     Dosage: 400 Milligram
     Route: 048
     Dates: start: 20120720
  3. AMLODIPINE [Concomitant]
     Indication: HYPERTENSION
     Dosage: 5 Milligram
     Route: 048
  4. BAYER [Concomitant]
     Indication: DVT PROPHYLAXIS
     Dosage: 81 Milligram
     Route: 048
     Dates: start: 20120720
  5. BACTRIM DS [Concomitant]
     Indication: ANTIBACTERIAL PROPHYLAXIS
     Dosage: 160-800 MG
     Route: 048
     Dates: start: 20120720
  6. PERCOCET [Concomitant]
     Indication: DRUG USE FOR UNKNOWN INDICATION
     Route: 065

REACTIONS (1)
  - Nephrolithiasis [Recovered/Resolved]
